FAERS Safety Report 6860395-6 (Version None)
Quarter: 2010Q3

REPORT INFORMATION
  Report Type: 
  Country: None (occurrence: None)
  Receive Date: 20100720
  Receipt Date: 20100707
  Transmission Date: 20110219
  Serious: Yes (Hospitalization)
  Sender: FDA-Public Use
  Company Number: US-ELI_LILLY_AND_COMPANY-US201007002038

PATIENT
  Age: 55 Year
  Sex: Female

DRUGS (3)
  1. CYMBALTA [Suspect]
     Indication: ANXIETY
     Dosage: 60 MG, DAILY (1/D)
     Route: 065
  2. SKELAXIN [Concomitant]
  3. VICODIN [Concomitant]

REACTIONS (5)
  - DISORIENTATION [None]
  - INFECTION [None]
  - MALAISE [None]
  - NAUSEA [None]
  - PRECANCEROUS CELLS PRESENT [None]
